FAERS Safety Report 7761337-1 (Version None)
Quarter: 2011Q3

REPORT INFORMATION
  Report Type: 
  Country: None (occurrence: None)
  Receive Date: 20110920
  Receipt Date: 20110908
  Transmission Date: 20111222
  Serious: No
  Sender: FDA-Public Use
  Company Number: US-PFIZER INC-2011171782

PATIENT
  Sex: Female
  Weight: 66.7 kg

DRUGS (3)
  1. COMBIPATCH [Suspect]
     Indication: HOT FLUSH
     Dosage: 0.05/.14 2XWKS
     Dates: end: 20110514
  2. PREMPRO [Suspect]
     Indication: HOT FLUSH
     Dosage: 0.625MG/5MG, 1X/DAY
     Route: 048
     Dates: start: 20110722, end: 20110727
  3. COMBIPATCH [Suspect]
     Dosage: 0.05/.25
     Dates: start: 20110514, end: 20110720

REACTIONS (10)
  - DIZZINESS [None]
  - ASTHENIA [None]
  - HOT FLUSH [None]
  - HYPERSENSITIVITY [None]
  - NAUSEA [None]
  - MUSCLE SPASMS [None]
  - VAGINAL HAEMORRHAGE [None]
  - SLEEP DISORDER [None]
  - HEADACHE [None]
  - INSOMNIA [None]
